FAERS Safety Report 20429528 (Version 1)
Quarter: 2022Q1

REPORT INFORMATION
  Report Type: Report from Study
  Country: FR (occurrence: FR)
  Receive Date: 20220204
  Receipt Date: 20220204
  Transmission Date: 20220423
  Serious: Yes (Other)
  Sender: FDA-Public Use
  Company Number: FR-SHIRE-FR201834163

PATIENT

DRUGS (6)
  1. ONCASPAR [Suspect]
     Active Substance: PEGASPARGASE
     Indication: Acute lymphocytic leukaemia
     Dosage: 1500 IU, QD 1500 IU, ON D8 AND 36
     Route: 042
     Dates: start: 20180615
  2. VINCRISTINE [Suspect]
     Active Substance: VINCRISTINE
     Indication: Acute lymphocytic leukaemia
     Dosage: 0.9 MG, D1, D8, D29 AND D36
     Route: 042
     Dates: start: 20180608
  3. DEXAMETHASONE [Suspect]
     Active Substance: DEXAMETHASONE
     Indication: Acute lymphocytic leukaemia
     Dosage: 3.6 MG, D1-D5, D29-D33
     Route: 048
     Dates: start: 20180608
  4. METHOTREXATE [Suspect]
     Active Substance: METHOTREXATE
     Indication: Acute lymphocytic leukaemia
     Dosage: 12 MG, ON D2, D30 NOT DONE
     Route: 037
     Dates: start: 20180609
  5. METHOTREXATE [Suspect]
     Active Substance: METHOTREXATE
     Dosage: 15 MG,  D8, D15, D22, D36
     Route: 048
     Dates: start: 20180615
  6. THIOGUANINE ANHYDROUS [Suspect]
     Active Substance: THIOGUANINE ANHYDROUS
     Indication: Acute lymphocytic leukaemia
     Dosage: 630 MG, ON D1-D24, D29-D49)
     Route: 048
     Dates: start: 20180608

REACTIONS (2)
  - Hyperbilirubinaemia [Recovered/Resolved]
  - Posterior reversible encephalopathy syndrome [Unknown]

NARRATIVE: CASE EVENT DATE: 20180514
